FAERS Safety Report 19167894 (Version 1)
Quarter: 2021Q2

REPORT INFORMATION
  Report Type: Spontaneous
  Country: US (occurrence: US)
  Receive Date: 20210421
  Receipt Date: 20210421
  Transmission Date: 20210717
  Serious: No
  Sender: FDA-Public Use
  Company Number: None

PATIENT
  Age: 51 Year
  Sex: Male
  Weight: 49.2 kg

DRUGS (1)
  1. GEMCITABINE HYDROCHLORIDE. [Suspect]
     Active Substance: GEMCITABINE HYDROCHLORIDE
     Dates: end: 20210407

REACTIONS (4)
  - Dizziness postural [None]
  - Packed red blood cell transfusion [None]
  - Anaemia [None]
  - White blood cell count decreased [None]

NARRATIVE: CASE EVENT DATE: 20210413
